FAERS Safety Report 21287005 (Version 1)
Quarter: 2022Q3

REPORT INFORMATION
  Report Type: Spontaneous
  Country: US (occurrence: None)
  Receive Date: 20220902
  Receipt Date: 20220902
  Transmission Date: 20221027
  Serious: Yes (Hospitalization)
  Sender: FDA-Public Use
  Company Number: None

PATIENT
  Age: 42 Year
  Sex: Male

DRUGS (1)
  1. COLCHICINE [Suspect]
     Active Substance: COLCHICINE
     Indication: Rectal adenocarcinoma
     Dosage: OTHER QUANTITY : 0.6 MG;?FREQUENCY : TWICE A DAY;?
     Route: 048
     Dates: start: 20220714, end: 20220819

REACTIONS (9)
  - Vomiting [None]
  - Hydronephrosis [None]
  - Nausea [None]
  - Pyrexia [None]
  - Abdominal pain [None]
  - Flank pain [None]
  - Pleural effusion [None]
  - Constipation [None]
  - Hypophagia [None]

NARRATIVE: CASE EVENT DATE: 20220831
